FAERS Safety Report 16806820 (Version 1)
Quarter: 2019Q3

REPORT INFORMATION
  Report Type: Spontaneous
  Country: PT (occurrence: PT)
  Receive Date: 20190913
  Receipt Date: 20190913
  Transmission Date: 20191005
  Serious: Yes (Other)
  Sender: FDA-Public Use
  Company Number: PT-BAUSCH-BL-2019-025504

PATIENT
  Sex: Female

DRUGS (13)
  1. DEFLAZACORT [Suspect]
     Active Substance: DEFLAZACORT
     Dosage: TAPERED TO A RESIDUAL DOSE
     Route: 048
  2. ACETAZOLAMIDE. [Suspect]
     Active Substance: ACETAZOLAMIDE
     Indication: PREOPERATIVE CARE
     Route: 048
     Dates: start: 2014
  3. TIMOLOL. [Suspect]
     Active Substance: TIMOLOL
     Dosage: TWICE DAILY EACH, IN BOTH EYES
     Route: 061
  4. DEFLAZACORT [Suspect]
     Active Substance: DEFLAZACORT
     Indication: JUVENILE IDIOPATHIC ARTHRITIS
     Route: 048
     Dates: start: 2011
  5. DEXAMETASONE [Suspect]
     Active Substance: DEXAMETHASONE
     Indication: INTRAOCULAR PRESSURE TEST
     Dosage: TWICE DAILY EACH, IN BOTH EYES
     Route: 061
  6. METHOTREXATE. [Suspect]
     Active Substance: METHOTREXATE
     Indication: JUVENILE IDIOPATHIC ARTHRITIS
     Dosage: UP TO 15 MG/M2 PER WEEK
     Route: 048
     Dates: start: 2011
  7. METHOTREXATE. [Suspect]
     Active Substance: METHOTREXATE
     Route: 058
  8. ADALIMUMAB [Suspect]
     Active Substance: ADALIMUMAB
     Indication: JUVENILE IDIOPATHIC ARTHRITIS
     Route: 058
     Dates: start: 2014, end: 2015
  9. BRIMONIDINE [Suspect]
     Active Substance: BRIMONIDINE TARTRATE
     Indication: INTRAOCULAR PRESSURE TEST
     Route: 061
  10. TIMOLOL. [Suspect]
     Active Substance: TIMOLOL
     Indication: INTRAOCULAR PRESSURE TEST
  11. LATANOPROST. [Suspect]
     Active Substance: LATANOPROST
     Indication: PREOPERATIVE CARE
     Route: 061
     Dates: start: 2014
  12. IBUPROFEN. [Suspect]
     Active Substance: IBUPROFEN
     Indication: JUVENILE IDIOPATHIC ARTHRITIS
     Route: 048
     Dates: start: 2010
  13. BRINZOLAMIDE [Suspect]
     Active Substance: BRINZOLAMIDE
     Indication: INTRAOCULAR PRESSURE TEST
     Route: 061

REACTIONS (5)
  - Body height below normal [Recovered/Resolved]
  - Cataract subcapsular [Recovered/Resolved]
  - Muscle atrophy [Unknown]
  - Cushing^s syndrome [Recovered/Resolved]
  - Intraocular pressure increased [Recovered/Resolved]

NARRATIVE: CASE EVENT DATE: 201301
